FAERS Safety Report 4876621-9 (Version None)
Quarter: 2005Q4

REPORT INFORMATION
  Report Type: 
  Country: None (occurrence: None)
  Receive Date: 20051206
  Receipt Date: 20050811
  Transmission Date: 20060501
  Serious: No
  Sender: FDA-Public Use
  Company Number: USA0506100842

PATIENT
  Age: 72 Year
  Sex: Female
  Weight: 73 kg

DRUGS (14)
  1. CYMBALTA [Suspect]
     Indication: DEPRESSION
     Dosage: 60 MG DAY
     Dates: start: 20050401, end: 20050617
  2. PROZAC [Concomitant]
  3. PRILOSEC [Concomitant]
  4. MEDROXYPROGESTERONE [Concomitant]
  5. CENESTIN [Concomitant]
  6. REGLAN [Concomitant]
  7. POTASSIUM [Concomitant]
  8. DIAZIDE (GLICLAZIDE) [Concomitant]
  9. PHENERGAN [Concomitant]
  10. LORTAB [Concomitant]
  11. BENTYL [Concomitant]
  12. FENTANYL [Concomitant]
  13. SONATA [Concomitant]
  14. LORCET-HD [Concomitant]

REACTIONS (12)
  - ABNORMAL BEHAVIOUR [None]
  - CONSTIPATION [None]
  - FATIGUE [None]
  - FEELING ABNORMAL [None]
  - HALLUCINATION, VISUAL [None]
  - HEADACHE [None]
  - HYPERHIDROSIS [None]
  - INSOMNIA [None]
  - NIGHTMARE [None]
  - PRURITUS [None]
  - SCRATCH [None]
  - SOMNOLENCE [None]
